FAERS Safety Report 8995183 (Version 1)
Quarter: 2012Q4

REPORT INFORMATION
  Report Type: Spontaneous
  Country: US (occurrence: None)
  Receive Date: 20121228
  Receipt Date: 20121228
  Transmission Date: 20130627
  Serious: Yes (Life-Threatening)
  Sender: FDA-Public Use
  Company Number: None

PATIENT
  Age: 64 Year
  Sex: Male
  Weight: 62.6 kg

DRUGS (1)
  1. ALLOPURINOL [Suspect]
     Indication: GOUT
     Dosage: 100 MG EVERY DAY PO
     Route: 048
     Dates: start: 20071118, end: 20121210

REACTIONS (1)
  - Angioedema [None]
